FAERS Safety Report 8965500 (Version 1)
Quarter: 2012Q4

REPORT INFORMATION
  Report Type: Spontaneous
  Country: US (occurrence: None)
  Receive Date: 20121205
  Receipt Date: 20121205
  Transmission Date: 20130627
  Serious: Yes (Hospitalization, Other)
  Sender: FDA-Public Use
  Company Number: ADR-2012-02174

PATIENT
  Sex: Male

DRUGS (1)
  1. BACLOFEN [Suspect]
     Indication: SPASTICITY

REACTIONS (12)
  - Implant site pain [None]
  - Implant site scar [None]
  - Emphysema [None]
  - Condition aggravated [None]
  - Hypoaesthesia [None]
  - Hypoaesthesia [None]
  - Hypoaesthesia [None]
  - Pain [None]
  - Tenderness [None]
  - Neuroma [None]
  - Gait disturbance [None]
  - Decubitus ulcer [None]
